FAERS Safety Report 22331526 (Version 1)
Quarter: 2023Q2

REPORT INFORMATION
  Report Type: Spontaneous
  Country: US (occurrence: US)
  Receive Date: 20230517
  Receipt Date: 20230517
  Transmission Date: 20230721
  Serious: Yes (Other)
  Sender: FDA-Public Use
  Company Number: US-JNJFOC-20230519157

PATIENT
  Age: 56 Year
  Sex: Female
  Weight: 48.1 kg

DRUGS (10)
  1. OPSUMIT [Suspect]
     Active Substance: MACITENTAN
     Indication: Pulmonary arterial hypertension
     Route: 048
  2. TREPROSTINIL [Suspect]
     Active Substance: TREPROSTINIL
     Indication: Pulmonary arterial hypertension
     Route: 055
  3. TREPROSTINIL [Suspect]
     Active Substance: TREPROSTINIL
     Route: 055
  4. TREPROSTINIL [Suspect]
     Active Substance: TREPROSTINIL
     Route: 055
  5. TREPROSTINIL [Suspect]
     Active Substance: TREPROSTINIL
     Route: 055
  6. TREPROSTINIL [Suspect]
     Active Substance: TREPROSTINIL
     Dosage: (32 G+48 G),
     Route: 055
  7. TREPROSTINIL [Suspect]
     Active Substance: TREPROSTINIL
     Route: 055
     Dates: start: 20221115
  8. TREPROSTINIL [Suspect]
     Active Substance: TREPROSTINIL
     Route: 055
  9. TREPROSTINIL [Suspect]
     Active Substance: TREPROSTINIL
     Route: 055
  10. TADALAFIL [Concomitant]
     Active Substance: TADALAFIL

REACTIONS (4)
  - Cardiac failure [Unknown]
  - Pain in extremity [Unknown]
  - Mood swings [Unknown]
  - Weight increased [Unknown]

NARRATIVE: CASE EVENT DATE: 20220101
